FAERS Safety Report 8368891-X (Version None)
Quarter: 2012Q2

REPORT INFORMATION
  Report Type: 
  Country: None (occurrence: None)
  Receive Date: 20120516
  Receipt Date: 20120503
  Transmission Date: 20120825
  Serious: Yes (Death)
  Sender: FDA-Public Use
  Company Number: UTC-018463

PATIENT
  Age: 63 Year
  Sex: Female
  Weight: 87.27 kg

DRUGS (2)
  1. REMODULIN [Suspect]
     Indication: PULMONARY HYPERTENSION
     Dosage: (7 NANGM), SUBCUTANEOUS
     Route: 058
     Dates: start: 20120131
  2. REVATIO [Concomitant]

REACTIONS (1)
  - DEATH [None]
